FAERS Safety Report 4533211-5 (Version None)
Quarter: 2004Q4

REPORT INFORMATION
  Report Type: 
  Country: None (occurrence: None)
  Receive Date: 20041206
  Receipt Date: 20041012
  Transmission Date: 20050328
  Serious: No
  Sender: FDA-Public Use
  Company Number: USA041080984

PATIENT
  Sex: Male

DRUGS (2)
  1. PROZAC [Suspect]
  2. CYMBALTA [Suspect]
     Dosage: 30 MG

REACTIONS (2)
  - FEELING ABNORMAL [None]
  - VOMITING [None]
